FAERS Safety Report 7698860-4 (Version None)
Quarter: 2011Q3

REPORT INFORMATION
  Report Type: 
  Country: None (occurrence: None)
  Receive Date: 20110819
  Receipt Date: 20110809
  Transmission Date: 20111222
  Serious: Yes (Other)
  Sender: FDA-Public Use
  Company Number: PHEH2009US16949

PATIENT
  Sex: Female

DRUGS (1)
  1. AREDIA [Suspect]

REACTIONS (8)
  - DECREASED INTEREST [None]
  - BREAST CANCER [None]
  - INJURY [None]
  - PAIN [None]
  - OSTEOPOROSIS [None]
  - ANXIETY [None]
  - OSTEOPENIA [None]
  - OSTEONECROSIS OF JAW [None]
